FAERS Safety Report 16116147 (Version 1)
Quarter: 2019Q1

REPORT INFORMATION
  Report Type: Spontaneous
  Country: US (occurrence: US)
  Receive Date: 20190326
  Receipt Date: 20190326
  Transmission Date: 20190418
  Serious: No
  Sender: FDA-Public Use
  Company Number: US-TEVA-2019-US-1028079

PATIENT
  Age: 68 Year
  Sex: Female

DRUGS (1)
  1. BUPRENORPHINE TEVA [Suspect]
     Active Substance: BUPRENORPHINE
     Dosage: 5 MCG/HR
     Dates: start: 20190314

REACTIONS (4)
  - Product adhesion issue [Unknown]
  - Wrong technique in product usage process [Unknown]
  - Nausea [Unknown]
  - Product quality issue [Unknown]

NARRATIVE: CASE EVENT DATE: 201903
